FAERS Safety Report 10330849 (Version 1)
Quarter: 2014Q3

REPORT INFORMATION
  Report Type: Spontaneous
  Country: US (occurrence: None)
  Receive Date: 20140721
  Receipt Date: 20140721
  Transmission Date: 20150326
  Serious: Yes (Death, Hospitalization)
  Sender: FDA-Public Use
  Company Number: None

PATIENT
  Age: 58 Year
  Sex: Male
  Weight: 62.2 kg

DRUGS (2)
  1. TAXOTERE [Suspect]
     Active Substance: DOCETAXEL
     Dates: end: 20140627
  2. CISPLATIN. [Suspect]
     Active Substance: CISPLATIN
     Dates: end: 20140627

REACTIONS (3)
  - Cardiac arrest [None]
  - Haematemesis [None]
  - Pulseless electrical activity [None]

NARRATIVE: CASE EVENT DATE: 20140713
